FAERS Safety Report 9619359 (Version 2)
Quarter: 2013Q4

REPORT INFORMATION
  Report Type: Report from Study
  Country: CA (occurrence: CA)
  Receive Date: 20131014
  Receipt Date: 20131014
  Transmission Date: 20140711
  Serious: Yes (Other)
  Sender: FDA-Public Use
  Company Number: CA-UCBSA-085292

PATIENT
  Age: 65 Year
  Sex: Female
  Weight: 84 kg

DRUGS (1)
  1. CIMZIA [Suspect]
     Indication: RHEUMATOID ARTHRITIS
     Route: 058
     Dates: start: 20130412, end: 20130510

REACTIONS (4)
  - Cataract [Recovered/Resolved]
  - Dry skin [Not Recovered/Not Resolved]
  - Injection site bruising [Recovered/Resolved]
  - White blood cell count decreased [Recovered/Resolved]
